FAERS Safety Report 19503646 (Version 4)
Quarter: 2022Q4

REPORT INFORMATION
  Report Type: Spontaneous
  Country: CZ (occurrence: CZ)
  Receive Date: 20210707
  Receipt Date: 20221010
  Transmission Date: 20230113
  Serious: Yes (Other)
  Sender: FDA-Public Use
  Company Number: NVSC2021CZ134367

PATIENT
  Age: 20 Year
  Sex: Male

DRUGS (5)
  1. CARBAMAZEPINE [Suspect]
     Active Substance: CARBAMAZEPINE
     Indication: Epilepsy
     Dosage: UNK
     Route: 065
  2. LEVETIRACETAM [Suspect]
     Active Substance: LEVETIRACETAM
     Indication: Epilepsy
     Dosage: UNK
     Route: 065
  3. LACOSAMIDE [Suspect]
     Active Substance: LACOSAMIDE
     Indication: Epilepsy
     Dosage: UNK
     Route: 065
  4. LAMOTRIGINE [Suspect]
     Active Substance: LAMOTRIGINE
     Indication: Epilepsy
     Dosage: UNK
     Route: 065
  5. PERAMPANEL [Concomitant]
     Active Substance: PERAMPANEL
     Indication: Epilepsy
     Dosage: UNK
     Route: 065

REACTIONS (4)
  - Neurological decompensation [Recovered/Resolved]
  - Hepatic function abnormal [Recovered/Resolved]
  - Drug ineffective [Unknown]
  - Aggression [Recovered/Resolved]
